FAERS Safety Report 8419693-7 (Version None)
Quarter: 2012Q2

REPORT INFORMATION
  Report Type: 
  Country: None (occurrence: None)
  Receive Date: 20120604
  Receipt Date: 20120604
  Transmission Date: 20120825
  Serious: Yes (Other)
  Sender: FDA-Public Use
  Company Number: None

PATIENT
  Age: 51 Year
  Sex: Female
  Weight: 84.8226 kg

DRUGS (1)
  1. DOXYCYCLINE HYCLATE [Suspect]
     Indication: PNEUMONIA
     Dosage: 1 CAPSULE BY MOUTH TWICE DAILY PO
     Route: 048
     Dates: start: 20120531, end: 20120531

REACTIONS (7)
  - CHEST DISCOMFORT [None]
  - OROPHARYNGEAL PAIN [None]
  - SKIN IRRITATION [None]
  - AGITATION [None]
  - TREMOR [None]
  - URTICARIA [None]
  - ORAL DISORDER [None]
